FAERS Safety Report 10210578 (Version 1)
Quarter: 2014Q2

REPORT INFORMATION
  Report Type: Spontaneous
  Country: FR (occurrence: FR)
  Receive Date: 20140602
  Receipt Date: 20140602
  Transmission Date: 20141212
  Serious: Yes (Hospitalization)
  Sender: FDA-Public Use
  Company Number: FR-SA-2014SA069332

PATIENT
  Age: 64 Year
  Sex: Female

DRUGS (9)
  1. ENOXAPARIN SODIUM [Suspect]
     Indication: PRODUCT USED FOR UNKNOWN INDICATION
     Route: 058
     Dates: start: 20140415, end: 20140416
  2. AMLODIPINE BESILATE [Suspect]
     Indication: PRODUCT USED FOR UNKNOWN INDICATION
     Route: 065
     Dates: start: 20140322, end: 20140417
  3. THALIDOMIDE [Suspect]
     Indication: PLASMA CELL MYELOMA
     Route: 048
     Dates: start: 20140404, end: 20140416
  4. ZELITREX [Suspect]
     Indication: PRODUCT USED FOR UNKNOWN INDICATION
     Route: 048
     Dates: start: 20140403, end: 20140415
  5. VELCADE [Suspect]
     Indication: PLASMA CELL MYELOMA
     Route: 042
     Dates: start: 20140404, end: 20140411
  6. DEXAMETHASONE [Suspect]
     Indication: PLASMA CELL MYELOMA
     Route: 048
     Dates: start: 20130412, end: 20140415
  7. ORAP [Concomitant]
     Indication: DEPRESSION
     Dosage: START DATE : LONG-STANDING MEDICATION
     Route: 065
  8. NOZINAN [Concomitant]
     Indication: DEPRESSION
     Dosage: START DATE : LONG-STANDING MEDICATION
     Route: 065
  9. TRANXENE [Concomitant]
     Indication: DEPRESSION
     Dosage: V
     Route: 065

REACTIONS (3)
  - Urticaria [Recovered/Resolved]
  - Rash pustular [Recovered/Resolved]
  - Acute generalised exanthematous pustulosis [Recovered/Resolved]
